FAERS Safety Report 12211974 (Version 1)
Quarter: 2016Q1

REPORT INFORMATION
  Report Type: Spontaneous
  Country: US (occurrence: US)
  Receive Date: 20160325
  Receipt Date: 20160325
  Transmission Date: 20160526
  Serious: No
  Sender: FDA-Public Use
  Company Number: US-TEVA-644685USA

PATIENT
  Sex: Female

DRUGS (1)
  1. AZILECT [Suspect]
     Active Substance: RASAGILINE MESYLATE
     Indication: PARKINSON^S DISEASE

REACTIONS (5)
  - Pruritus generalised [Unknown]
  - Fluid retention [Unknown]
  - Dyskinesia [Unknown]
  - Gait disturbance [Unknown]
  - Weight increased [Unknown]
